FAERS Safety Report 6903788-0 (Version None)
Quarter: 2010Q3

REPORT INFORMATION
  Report Type: 
  Country: None (occurrence: None)
  Receive Date: 20100804
  Receipt Date: 20081128
  Transmission Date: 20110219
  Serious: No
  Sender: FDA-Public Use
  Company Number: US-PFIZER INC-2008089418

PATIENT

DRUGS (2)
  1. LYRICA [Suspect]
     Indication: RADICULOPATHY
  2. LYRICA [Suspect]
     Indication: RADICULAR PAIN

REACTIONS (1)
  - ANTINUCLEAR ANTIBODY POSITIVE [None]
